FAERS Safety Report 6567025-1 (Version None)
Quarter: 2010Q1

REPORT INFORMATION
  Report Type: 
  Country: None (occurrence: None)
  Receive Date: 20100127
  Receipt Date: 20100113
  Transmission Date: 20100710
  Serious: No
  Sender: FDA-Public Use
  Company Number: 007283

PATIENT
  Age: 86 Year
  Sex: Female

DRUGS (5)
  1. PLETAL [Suspect]
     Indication: CEREBRAL INFARCTION
     Dosage: 100 MG, BID, ORAL
     Route: 048
     Dates: start: 20090605, end: 20090803
  2. DEPAKENE [Suspect]
     Indication: CONVULSION
     Dosage: 800 MG, DAILY DOSE, ORAL
     Route: 048
     Dates: end: 20090803
  3. DIOVANE (VALSARTAN) [Concomitant]
  4. AMANTADINE HCL [Concomitant]
  5. ARICEPT [Concomitant]

REACTIONS (5)
  - ALANINE AMINOTRANSFERASE INCREASED [None]
  - ASPARTATE AMINOTRANSFERASE INCREASED [None]
  - BLOOD ALKALINE PHOSPHATASE INCREASED [None]
  - HYPOKALAEMIA [None]
  - LIVER DISORDER [None]
